FAERS Safety Report 6808717-6 (Version None)
Quarter: 2010Q2

REPORT INFORMATION
  Report Type: 
  Country: None (occurrence: None)
  Receive Date: 20100629
  Receipt Date: 20090914
  Transmission Date: 20101027
  Serious: No
  Sender: FDA-Public Use
  Company Number: US-PFIZER INC-2009259730

PATIENT
  Age: 80 Year
  Sex: Female
  Weight: 54.4 kg

DRUGS (6)
  1. TIKOSYN [Suspect]
     Indication: ATRIAL FIBRILLATION
     Dosage: 125 UG, 2X/DAY
     Route: 048
     Dates: start: 20090812
  2. FENTANYL CITRATE [Suspect]
     Indication: ECHOCARDIOGRAM
     Dosage: UNK
  3. FENTANYL CITRATE [Suspect]
     Indication: CARDIOVERSION
  4. VERSED [Suspect]
     Dosage: UNK
  5. CADUET [Concomitant]
     Dosage: UNK
     Route: 048
  6. WARFARIN [Concomitant]
     Dosage: UNK

REACTIONS (6)
  - ASTHENIA [None]
  - CONFUSIONAL STATE [None]
  - EMOTIONAL DISORDER [None]
  - SEDATION [None]
  - THINKING ABNORMAL [None]
  - WEIGHT DECREASED [None]
